FAERS Safety Report 20423681 (Version 4)
Quarter: 2022Q2

REPORT INFORMATION
  Report Type: Report from Study
  Country: CA (occurrence: CA)
  Receive Date: 20220203
  Receipt Date: 20220413
  Transmission Date: 20220721
  Serious: Yes (Hospitalization)
  Sender: FDA-Public Use
  Company Number: CA-ABBVIE-22K-028-4262266-00

PATIENT
  Sex: Female

DRUGS (4)
  1. RINVOQ [Suspect]
     Active Substance: UPADACITINIB
     Indication: Rheumatoid arthritis
     Route: 048
     Dates: start: 20210208, end: 202201
  2. RINVOQ [Suspect]
     Active Substance: UPADACITINIB
     Route: 048
     Dates: start: 20220214, end: 20220224
  3. RINVOQ [Suspect]
     Active Substance: UPADACITINIB
     Dosage: DOSE REDUCED
     Route: 048
     Dates: start: 202203, end: 2022
  4. RINVOQ [Suspect]
     Active Substance: UPADACITINIB
     Route: 048
     Dates: start: 2022, end: 20220408

REACTIONS (8)
  - SARS-CoV-2 test positive [Recovering/Resolving]
  - Malaise [Unknown]
  - Skin atrophy [Recovered/Resolved]
  - General symptom [Recovered/Resolved]
  - Hypersensitivity [Recovering/Resolving]
  - Hypoaesthesia oral [Recovering/Resolving]
  - Swelling face [Recovering/Resolving]
  - Adverse drug reaction [Unknown]
